FAERS Safety Report 20978342 (Version 2)
Quarter: 2022Q3

REPORT INFORMATION
  Report Type: Spontaneous
  Country: US (occurrence: US)
  Receive Date: 20220618
  Receipt Date: 20220928
  Transmission Date: 20221026
  Serious: No
  Sender: FDA-Public Use
  Company Number: US-SA-SAC20220614002033

PATIENT
  Age: 53 Year
  Sex: Male
  Weight: 72.5 kg

DRUGS (19)
  1. DUPIXENT [Suspect]
     Active Substance: DUPILUMAB
     Dosage: 600 MG, 1X
     Route: 058
     Dates: start: 20210917, end: 20210917
  2. DUPIXENT [Suspect]
     Active Substance: DUPILUMAB
     Dosage: 300 MG, QOW
     Route: 058
     Dates: end: 20220130
  3. CLOBETASOL [Concomitant]
     Active Substance: CLOBETASOL
     Dosage: UNK
     Route: 061
     Dates: start: 20210204
  4. CLOBETASOL [Concomitant]
     Active Substance: CLOBETASOL
     Dosage: APPLY TO AFFECTED AREAS ON THE HANDS
     Route: 061
     Dates: start: 20210630
  5. CLOBETASOL [Concomitant]
     Active Substance: CLOBETASOL
     Dosage: APPLY TWICE DAILY TO RASH UP TO 2 WEEKS
     Route: 061
     Dates: start: 20220126
  6. OPZELURA [Concomitant]
     Active Substance: RUXOLITINIB PHOSPHATE
     Dosage: UNK UNK, QD
     Route: 061
     Dates: start: 20220224
  7. OPZELURA [Concomitant]
     Active Substance: RUXOLITINIB PHOSPHATE
     Dosage: APPLY TAA OF THE BODY BID.
  8. TACROLIMUS [Concomitant]
     Active Substance: TACROLIMUS
     Dosage: APPLY TO RASH QHS WITH COTTON GLOVE
     Route: 061
     Dates: start: 20210415
  9. TRIAMCINOLONE ACETONIDE [Concomitant]
     Active Substance: TRIAMCINOLONE ACETONIDE
     Dosage: UNK UNK, BID
     Route: 061
     Dates: start: 20210113
  10. BUPROPION HYDROCHLORIDE [Concomitant]
     Active Substance: BUPROPION HYDROCHLORIDE
     Dosage: TABLET EXTENDED RELEASE 24HR
     Route: 048
  11. DOXYCYCLINE HYCLATE [Concomitant]
     Active Substance: DOXYCYCLINE HYCLATE
     Dosage: TAKE ONE PILL PO BID WITH MEALS X10
     Route: 048
     Dates: start: 20210113
  12. ESCITALOPRAM OXALATE [Concomitant]
     Active Substance: ESCITALOPRAM OXALATE
     Dosage: UNK
     Route: 048
  13. EZETIMIBE [Concomitant]
     Active Substance: EZETIMIBE
     Dosage: UNK
     Route: 048
  14. MINOCYCLINE [Concomitant]
     Active Substance: MINOCYCLINE HYDROCHLORIDE
     Dosage: TAKE 1 CAPSULE TWICE DAILY WITH A MEAL.
     Route: 048
     Dates: start: 20210630
  15. PREDNISONE [Concomitant]
     Active Substance: PREDNISONE
     Dosage: TAKE 4 PILLS X4 DAYS, 3 PILLS X4 DAYS, 2
     Route: 048
     Dates: start: 20210113
  16. PREDNISONE [Concomitant]
     Active Substance: PREDNISONE
     Dosage: UNK
     Dates: start: 20220224
  17. ROSUVASTATIN [Concomitant]
     Active Substance: ROSUVASTATIN
     Dosage: UNK
     Route: 048
  18. ADBRY [Concomitant]
     Active Substance: TRALOKINUMAB-LDRM
     Dosage: 300 MG, QOW
     Route: 058
     Dates: start: 20220407
  19. OZEMPIC [Concomitant]
     Active Substance: SEMAGLUTIDE
     Dosage: 1 MG/DOSE; 2 MG/1.5ML
     Route: 058

REACTIONS (4)
  - Abdominal distension [Recovered/Resolved]
  - Eructation [Recovered/Resolved]
  - Flatulence [Recovered/Resolved]
  - Gastrointestinal disorder [Recovered/Resolved]

NARRATIVE: CASE EVENT DATE: 20220101
